FAERS Safety Report 17649005 (Version 1)
Quarter: 2020Q2

REPORT INFORMATION
  Report Type: Spontaneous
  Country: US (occurrence: US)
  Receive Date: 20200408
  Receipt Date: 20200408
  Transmission Date: 20200713
  Serious: Yes (Other)
  Sender: FDA-Public Use
  Company Number: None

PATIENT
  Sex: Male

DRUGS (1)
  1. SEREVENT DISKUS [Suspect]
     Active Substance: SALMETEROL XINAFOATE

REACTIONS (1)
  - Therapy non-responder [None]
